FAERS Safety Report 13500440 (Version 1)
Quarter: 2017Q2

REPORT INFORMATION
  Report Type: Spontaneous
  Country: US (occurrence: US)
  Receive Date: 20170501
  Receipt Date: 20170501
  Transmission Date: 20170830
  Serious: Yes (Other)
  Sender: FDA-Public Use
  Company Number: US-STANDARD HOMEOPATHIC COMPANY-2020057

PATIENT
  Age: 6 Month

DRUGS (2)
  1. BABY TEETHING (HYLAND HOMEOPATHIC) [Suspect]
     Active Substance: HOMEOPATHICS
     Indication: TEETHING
     Route: 048
     Dates: start: 201704, end: 201704
  2. BABY TEETHING (HYLAND HOMEOPATHIC) [Suspect]
     Active Substance: HOMEOPATHICS
     Indication: BODY TEMPERATURE INCREASED
     Route: 048
     Dates: start: 201704, end: 201704

REACTIONS (2)
  - Seizure [None]
  - Wrong technique in product usage process [None]

NARRATIVE: CASE EVENT DATE: 201704
